FAERS Safety Report 6078906-X (Version None)
Quarter: 2009Q1

REPORT INFORMATION
  Report Type: 
  Country: None (occurrence: None)
  Receive Date: 20090216
  Receipt Date: 20090115
  Transmission Date: 20090719
  Serious: No
  Sender: FDA-Public Use
  Company Number: US-BAYER-200911216NA

PATIENT
  Age: 33 Year
  Sex: Female

DRUGS (1)
  1. MIRENA [Suspect]
     Indication: CONTRACEPTION
     Route: 015
     Dates: start: 20080401, end: 20080401

REACTIONS (4)
  - ABDOMINAL PAIN [None]
  - DISTURBANCE IN ATTENTION [None]
  - PYREXIA [None]
  - UTERINE INFECTION [None]
